FAERS Safety Report 18398729 (Version 1)
Quarter: 2020Q4

REPORT INFORMATION
  Report Type: Spontaneous
  Country: US (occurrence: US)
  Receive Date: 20201019
  Receipt Date: 20201019
  Transmission Date: 20210114
  Serious: Yes (Other)
  Sender: FDA-Public Use
  Company Number: None

PATIENT
  Age: 15 Year
  Sex: Female
  Weight: 57.8 kg

DRUGS (1)
  1. IRON SUCROSE 20MG/ML [Suspect]
     Active Substance: IRON SUCROSE
     Indication: ANAEMIA
     Dosage: ?          OTHER DOSE:100 MG IN NS 50;?
     Route: 042
     Dates: start: 20200115

REACTIONS (3)
  - Infusion site pruritus [None]
  - Infusion related reaction [None]
  - Infusion site pain [None]

NARRATIVE: CASE EVENT DATE: 20200115
